FAERS Safety Report 8596499-X (Version None)
Quarter: 2012Q3

REPORT INFORMATION
  Report Type: 
  Country: None (occurrence: None)
  Receive Date: 20120815
  Receipt Date: 20120809
  Transmission Date: 20120928
  Serious: No
  Sender: FDA-Public Use
  Company Number: US-PFIZER INC-2012117289

PATIENT
  Age: 50 Year
  Sex: Male
  Weight: 113 kg

DRUGS (4)
  1. VIAGRA [Suspect]
     Indication: ERECTILE DYSFUNCTION
     Dosage: 25 MG, UNK
  2. VIAGRA [Suspect]
     Dosage: 50 MG, DAILY
     Route: 048
     Dates: start: 20120508, end: 20120523
  3. OXYCODONE [Concomitant]
     Indication: PAIN
     Dosage: 5 MG, 3X/DAY
  4. VIAGRA [Suspect]
     Dosage: 50 MG, AS NEEDED
     Route: 048
     Dates: start: 20120508, end: 20120101

REACTIONS (2)
  - DRUG INEFFECTIVE [None]
  - DRUG DISPENSING ERROR [None]
